FAERS Safety Report 4336591-9 (Version None)
Quarter: 2004Q2

REPORT INFORMATION
  Report Type: 
  Country: None (occurrence: None)
  Receive Date: 20040412
  Receipt Date: 20010123
  Transmission Date: 20050107
  Serious: Yes (Hospitalization)
  Sender: FDA-Public Use
  Company Number: PHHO2001NL01008

PATIENT
  Age: 73 Year
  Sex: Male
  Weight: 76 kg

DRUGS (11)
  1. ZELMAC [Suspect]
     Indication: IRRITABLE BOWEL SYNDROME
     Dosage: UNK, BID
     Dates: start: 20001215, end: 20010116
  2. BUPIVACAINE [Concomitant]
     Indication: HERPES ZOSTER
     Route: 008
  3. ACETAMINOPHEN [Concomitant]
  4. INDAPAMIDE [Concomitant]
  5. ZESTRIL [Concomitant]
  6. DUSPATAL [Concomitant]
  7. FAMVIR [Concomitant]
  8. ZOVIRAX [Concomitant]
  9. NEURONTIN [Concomitant]
  10. METAMUCIL-2 [Concomitant]
  11. LACTULOSE [Concomitant]

REACTIONS (6)
  - ABDOMINAL PAIN [None]
  - ANORECTAL DISORDER [None]
  - CHOLELITHIASIS [None]
  - ENDOSCOPIC RETROGRADE CHOLANGIOPANCREATOGRAPHY [None]
  - JAUNDICE [None]
  - WHITE BLOOD CELL COUNT INCREASED [None]
